FAERS Safety Report 4485875-2 (Version None)
Quarter: 2004Q4

REPORT INFORMATION
  Report Type: 
  Country: None (occurrence: None)
  Receive Date: 20041022
  Receipt Date: 20041007
  Transmission Date: 20050328
  Serious: Yes (Death)
  Sender: FDA-Public Use
  Company Number: 2004-BP-07877BP

PATIENT
  Age: 81 Year
  Sex: Male
  Weight: 55.3 kg

DRUGS (5)
  1. TIOTROPIUM INH. POWDER [Suspect]
     Indication: CHRONIC OBSTRUCTIVE AIRWAYS DISEASE
     Dosage: 18 MCG (18 MCG), IH
     Route: 055
     Dates: start: 20030710, end: 20040901
  2. ALBUTEROL [Concomitant]
  3. COSAMIN (COSAMIN) [Concomitant]
  4. HYDROCHLOROTHIAZIDE [Concomitant]
  5. DOVONEX (CALCIPOTRIOL) [Concomitant]

REACTIONS (5)
  - ARRHYTHMIA [None]
  - CORONARY ARTERY DISEASE [None]
  - EMPHYSEMA [None]
  - MYOCARDITIS [None]
  - SUDDEN CARDIAC DEATH [None]
